FAERS Safety Report 6378729-8 (Version None)
Quarter: 2009Q3

REPORT INFORMATION
  Report Type: 
  Country: None (occurrence: None)
  Receive Date: 20090923
  Receipt Date: 20090914
  Transmission Date: 20100115
  Serious: Yes (Death)
  Sender: FDA-Public Use
  Company Number: TPA2009A02633

PATIENT
  Age: 65 Year
  Sex: Male

DRUGS (1)
  1. KAPIDEX [Suspect]
     Indication: GASTROOESOPHAGEAL REFLUX DISEASE
     Dosage: PER ORAL
     Route: 048
     Dates: start: 20090101

REACTIONS (1)
  - OESOPHAGEAL ADENOCARCINOMA [None]
